FAERS Safety Report 7362560-0 (Version None)
Quarter: 2011Q1

REPORT INFORMATION
  Report Type: 
  Country: None (occurrence: None)
  Receive Date: 20110320
  Receipt Date: 20110225
  Transmission Date: 20110831
  Serious: No
  Sender: FDA-Public Use
  Company Number: US-ROXANE LABORATORIES, INC.-2011-RO-00234RO

PATIENT
  Sex: Female

DRUGS (5)
  1. FUROSEMIDE [Suspect]
     Indication: OEDEMA
     Dosage: 40 MG
     Route: 048
     Dates: start: 20101101, end: 20110304
  2. CALCIUM PLUS MAGNESIUM SUPPLEMENT [Concomitant]
  3. CRESTOR [Concomitant]
     Dosage: 5 MG
  4. COQ-10 [Concomitant]
  5. FUROSEMIDE [Suspect]
     Dosage: 80 MG
     Route: 048

REACTIONS (2)
  - FLUID RETENTION [None]
  - WEIGHT INCREASED [None]
